FAERS Safety Report 7406585-5 (Version None)
Quarter: 2011Q2

REPORT INFORMATION
  Report Type: 
  Country: None (occurrence: None)
  Receive Date: 20110411
  Receipt Date: 20110403
  Transmission Date: 20111010
  Serious: Yes (Other)
  Sender: FDA-Public Use
  Company Number: US-ASTRAZENECA-2010SE61045

PATIENT
  Age: 85 Year
  Sex: Male

DRUGS (3)
  1. ENTOCORT EC [Suspect]
     Indication: COELIAC DISEASE
     Route: 048
  2. PRILOSEC OTC [Suspect]
     Indication: DYSPEPSIA
     Route: 048
     Dates: start: 20101216, end: 20101219
  3. PRADAXA /01633202/ [Concomitant]
     Dosage: UNKNOWN

REACTIONS (11)
  - INCOHERENT [None]
  - SPEECH DISORDER [None]
  - FEELING COLD [None]
  - PRESYNCOPE [None]
  - MUSCULOSKELETAL STIFFNESS [None]
  - HYPERHIDROSIS [None]
  - DYSPEPSIA [None]
  - ATRIAL FIBRILLATION [None]
  - FEELING HOT [None]
  - PALLOR [None]
  - NAUSEA [None]
